FAERS Safety Report 21896000 (Version 4)
Quarter: 2024Q4

REPORT INFORMATION
  Report Type: Report from Study
  Country: BR (occurrence: BR)
  Receive Date: 20230123
  Receipt Date: 20241228
  Transmission Date: 20250114
  Serious: Yes (Other)
  Sender: CELLTRION
  Company Number: BR-CELLTRION INC.-2023BR000963

PATIENT

DRUGS (2)
  1. INFLIXIMAB-DYYB [Suspect]
     Active Substance: INFLIXIMAB-DYYB
     Indication: Colitis ulcerative
     Dosage: 3 AMPOULES EVERY 30 DAYS
     Route: 042
     Dates: start: 20221006
  2. INFLIXIMAB-DYYB [Suspect]
     Active Substance: INFLIXIMAB-DYYB
     Dosage: LAST INFUSION , 4 MONTHS AGO: 3 AMPOULES EVERY 30 DAYS
     Route: 042

REACTIONS (4)
  - Pancreatitis [Unknown]
  - Drug hypersensitivity [Recovering/Resolving]
  - Intentional dose omission [Unknown]
  - Intentional product use issue [Unknown]
